FAERS Safety Report 8075523-7 (Version None)
Quarter: 2012Q1

REPORT INFORMATION
  Report Type: 
  Country: None (occurrence: None)
  Receive Date: 20120127
  Receipt Date: 20120119
  Transmission Date: 20120608
  Serious: Yes (Hospitalization, Other)
  Sender: FDA-Public Use
  Company Number: US-BRISTOL-MYERS SQUIBB COMPANY-16235814

PATIENT
  Age: 73 Year
  Sex: Female
  Weight: 66 kg

DRUGS (1)
  1. IXEMPRA KIT [Suspect]
     Indication: UTERINE CANCER
     Dosage: LAST DOSE ON 05OCT2011,
     Route: 042
     Dates: start: 20110615

REACTIONS (8)
  - PYREXIA [None]
  - HYPOTENSION [None]
  - PURPURA [None]
  - SEPSIS [None]
  - HYPOMAGNESAEMIA [None]
  - LYMPHOCYTE COUNT DECREASED [None]
  - PAIN [None]
  - SKIN INFECTION [None]
